FAERS Safety Report 5474542-4 (Version None)
Quarter: 2007Q4

REPORT INFORMATION
  Report Type: 
  Country: None (occurrence: None)
  Receive Date: 20071002
  Receipt Date: 20070920
  Transmission Date: 20080405
  Serious: Yes (Hospitalization)
  Sender: FDA-Public Use
  Company Number: FR-AMGEN-UK238636

PATIENT
  Sex: Male

DRUGS (10)
  1. ARANESP [Suspect]
     Indication: ANAEMIA OF MALIGNANT DISEASE
     Route: 058
     Dates: start: 20070627, end: 20070627
  2. GEMZAR [Suspect]
     Route: 042
     Dates: start: 20070522, end: 20070703
  3. TARDYFERON [Suspect]
     Route: 048
     Dates: start: 20070627
  4. VALACYCLOVIR HCL [Concomitant]
  5. ZANIDIP [Concomitant]
  6. INEXIUM [Concomitant]
  7. SERESTA [Concomitant]
  8. EUPRESSYL [Concomitant]
  9. ZOLOFT [Concomitant]
  10. TRIATEC [Concomitant]

REACTIONS (1)
  - TRANSIENT ISCHAEMIC ATTACK [None]
